FAERS Safety Report 7106136-9 (Version None)
Quarter: 2010Q4

REPORT INFORMATION
  Report Type: 
  Country: None (occurrence: None)
  Receive Date: 20101116
  Receipt Date: 20101103
  Transmission Date: 20110411
  Serious: Yes (Hospitalization)
  Sender: FDA-Public Use
  Company Number: US-MYLANLABS-2010S1020574

PATIENT
  Age: 44 Year
  Sex: Female

DRUGS (3)
  1. VERAPAMIL [Suspect]
     Route: 048
  2. CLONAZEPAM [Suspect]
     Route: 048
  3. OXYCODONE/APAP                     /01601701/ [Concomitant]
     Route: 048

REACTIONS (3)
  - HYPERGLYCAEMIA [None]
  - HYPOTENSION [None]
  - OVERDOSE [None]
